FAERS Safety Report 12393796 (Version 3)
Quarter: 2016Q4

REPORT INFORMATION
  Report Type: Spontaneous
  Country: US (occurrence: US)
  Receive Date: 20160523
  Receipt Date: 20161024
  Transmission Date: 20170207
  Serious: Yes (Hospitalization)
  Sender: FDA-Public Use
  Company Number: US-ASTRAZENECA-2016SE53280

PATIENT
  Age: 23279 Day
  Sex: Female
  Weight: 81.2 kg

DRUGS (10)
  1. CITALOPRAM [Concomitant]
     Active Substance: CITALOPRAM HYDROBROMIDE
     Indication: DEPRESSION
     Route: 048
  2. SPIRIVA INHALER [Concomitant]
     Dosage: 1 DAILY
     Route: 055
  3. OXYCODONE [Concomitant]
     Active Substance: OXYCODONE
     Indication: PAIN
     Dosage: 5.0MG AS REQUIRED
     Route: 048
  4. ESCITALOPRAM [Concomitant]
     Active Substance: ESCITALOPRAM OXALATE
     Indication: DEPRESSION
     Route: 048
  5. DILTIAZEM. [Concomitant]
     Active Substance: DILTIAZEM
     Indication: BLOOD PRESSURE ABNORMAL
     Route: 048
  6. METOPROLOL. [Suspect]
     Active Substance: METOPROLOL
     Indication: BLOOD PRESSURE ABNORMAL
     Route: 048
  7. OXYGEN. [Concomitant]
     Active Substance: OXYGEN
     Indication: DYSPNOEA
     Dosage: 3-4 L CONTINUOUSLY
     Route: 055
     Dates: start: 20160425
  8. WARFARIN [Concomitant]
     Active Substance: WARFARIN
     Indication: PROPHYLAXIS
     Route: 048
  9. RADIATION THERAPY [Concomitant]
     Active Substance: RADIATION THERAPY
     Indication: LUNG NEOPLASM MALIGNANT
     Dates: start: 20160516
  10. SYMBICORT [Suspect]
     Active Substance: BUDESONIDE\FORMOTEROL FUMARATE DIHYDRATE
     Indication: CHRONIC OBSTRUCTIVE PULMONARY DISEASE
     Dosage: 80/4.5 MCG ONE PUFF TWO TIMES A DAY
     Route: 055
     Dates: start: 20160512

REACTIONS (5)
  - Chronic obstructive pulmonary disease [Unknown]
  - Fluid retention [Unknown]
  - Lung neoplasm malignant [Unknown]
  - Swelling [Unknown]
  - Device malfunction [Unknown]

NARRATIVE: CASE EVENT DATE: 20160503
